FAERS Safety Report 4335351-2 (Version None)
Quarter: 2004Q2

REPORT INFORMATION
  Report Type: 
  Country: None (occurrence: None)
  Receive Date: 20040406
  Receipt Date: 20040325
  Transmission Date: 20050107
  Serious: Yes (Death)
  Sender: FDA-Public Use
  Company Number: 163-20785-04030691

PATIENT
  Age: 67 Year
  Sex: Female

DRUGS (1)
  1. THALOMID [Suspect]
     Indication: RECTAL CANCER
     Dosage: 100 MG, DAILY, ORAL
     Route: 048
     Dates: start: 20030805

REACTIONS (1)
  - DECREASED APPETITE [None]
